FAERS Safety Report 6990627-5 (Version None)
Quarter: 2010Q3

REPORT INFORMATION
  Report Type: 
  Country: None (occurrence: None)
  Receive Date: 20100916
  Receipt Date: 20100713
  Transmission Date: 20110219
  Serious: Yes (Other)
  Sender: FDA-Public Use
  Company Number: US-PFIZER INC-2010033335

PATIENT
  Sex: Male
  Weight: 102.95 kg

DRUGS (9)
  1. LYRICA [Suspect]
     Indication: PAIN
     Dosage: 75 MG, 3X/DAY
     Route: 048
     Dates: start: 20100219
  2. LYRICA [Suspect]
     Indication: POST HERPETIC NEURALGIA
     Dosage: 150 MG, 3X/DAY
     Route: 048
     Dates: start: 20100201, end: 20100303
  3. LYRICA [Suspect]
     Dosage: 150 MG, 2X/DAY
     Dates: start: 20100303
  4. UNIRETIC [Concomitant]
     Indication: HYPERTENSION
     Dosage: UNK
  5. GLYBURIDE [Concomitant]
     Indication: DIABETES MELLITUS
     Dosage: UNK
  6. METFORMIN [Concomitant]
     Indication: DIABETES MELLITUS
     Dosage: UNK
  7. AVONEX [Concomitant]
     Indication: MULTIPLE SCLEROSIS
     Dosage: UNK
  8. ALLOPURINOL [Concomitant]
     Indication: GOUT
     Dosage: UNK
  9. LIPITOR [Concomitant]
     Indication: BLOOD CHOLESTEROL INCREASED
     Dosage: UNK

REACTIONS (3)
  - ASTHENIA [None]
  - BEDRIDDEN [None]
  - MUSCULAR WEAKNESS [None]
